FAERS Safety Report 6241722-X (Version None)
Quarter: 2009Q2

REPORT INFORMATION
  Report Type: 
  Country: None (occurrence: None)
  Receive Date: 20090623
  Receipt Date: 20090611
  Transmission Date: 20091009
  Serious: Yes (Other)
  Sender: FDA-Public Use
  Company Number: GB-MYLANLABS-2009S1010469

PATIENT
  Age: 41 Year
  Sex: Female
  Weight: 76 kg

DRUGS (3)
  1. FLUCONAZOLE [Suspect]
     Indication: CANDIDIASIS
     Route: 048
     Dates: start: 20090523, end: 20090530
  2. COD LIVER OIL [Concomitant]
     Indication: ROUTINE HEALTH MAINTENANCE
     Route: 048
  3. VITAMIN [Concomitant]
     Indication: ROUTINE HEALTH MAINTENANCE
     Route: 048

REACTIONS (1)
  - HYPOAESTHESIA ORAL [None]
